FAERS Safety Report 6557832-3 (Version None)
Quarter: 2010Q1

REPORT INFORMATION
  Report Type: 
  Country: None (occurrence: None)
  Receive Date: 20100129
  Receipt Date: 20091111
  Transmission Date: 20100710
  Serious: No
  Sender: FDA-Public Use
  Company Number: US-BAUSCH-2009BL005600

PATIENT
  Age: 6 Year
  Sex: Male

DRUGS (1)
  1. NEOMYCIN AND POLYMXIN B SULFATES AND HYDROCORTISONE [Suspect]
     Indication: DRUG USE FOR UNKNOWN INDICATION
     Route: 047

REACTIONS (3)
  - DRUG DISPENSING ERROR [None]
  - EYE IRRITATION [None]
  - INCORRECT ROUTE OF DRUG ADMINISTRATION [None]
